FAERS Safety Report 4832753-2 (Version None)
Quarter: 2005Q4

REPORT INFORMATION
  Report Type: 
  Country: None (occurrence: None)
  Receive Date: 20051117
  Receipt Date: 20051109
  Transmission Date: 20060501
  Serious: Yes (Hospitalization, Other)
  Sender: FDA-Public Use
  Company Number: USA030948566

PATIENT
  Age: 44 Year
  Sex: Male
  Weight: 75 kg

DRUGS (10)
  1. PROZAC [Suspect]
     Dosage: 2.5 MG
     Dates: end: 19880101
  2. ZYPREXA [Suspect]
     Indication: CONFUSIONAL STATE
     Dosage: 20 MG/1 AT BEDTIME
     Dates: start: 20030707
  3. DEPAKOTE [Concomitant]
  4. HALDOL (HALOPERIDOL) [Concomitant]
  5. KLONOPIN [Concomitant]
  6. MELLARIL [Concomitant]
  7. RISPERDAL [Concomitant]
  8. SEROQUEL [Concomitant]
  9. LITHIUM [Concomitant]
  10. LEXAPRO [Concomitant]

REACTIONS (26)
  - AGITATION [None]
  - AKATHISIA [None]
  - ANXIETY [None]
  - BACK PAIN [None]
  - BLOOD CHOLESTEROL INCREASED [None]
  - CEREBROVASCULAR ACCIDENT [None]
  - DENTAL TREATMENT [None]
  - DRY MOUTH [None]
  - EYE INFECTION [None]
  - FEAR OF DISEASE [None]
  - FORMICATION [None]
  - HEART RATE INCREASED [None]
  - HYPERAESTHESIA [None]
  - INSOMNIA [None]
  - MEMORY IMPAIRMENT [None]
  - MIOSIS [None]
  - MUSCULOSKELETAL STIFFNESS [None]
  - OBSESSIVE-COMPULSIVE DISORDER [None]
  - PAIN IN EXTREMITY [None]
  - PANIC ATTACK [None]
  - PARAESTHESIA [None]
  - PYREXIA [None]
  - RESTLESSNESS [None]
  - SOMNOLENCE [None]
  - TONGUE DISORDER [None]
  - WEIGHT INCREASED [None]
